FAERS Safety Report 8846868 (Version 1)
Quarter: 2012Q4

REPORT INFORMATION
  Report Type: 
  Country: US (occurrence: US)
  Receive Date: 20121018
  Receipt Date: 20121018
  Transmission Date: 20130627
  Serious: Yes (Hospitalization)
  Sender: FDA-Public Use
  Company Number: US-JNJFOC-20121006224

PATIENT
  Sex: Female
  Weight: 81.65 kg

DRUGS (15)
  1. ELMIRON [Suspect]
     Indication: CYSTITIS INTERSTITIAL
     Dosage: taking 1 or 2 times a day
     Route: 048
  2. ELMIRON [Suspect]
     Indication: CYSTITIS INTERSTITIAL
     Route: 048
  3. ATENOLOL [Concomitant]
     Indication: BLOOD PRESSURE
     Route: 065
  4. TRAMADOL [Concomitant]
     Indication: PAIN
     Route: 065
  5. FLEXERIL [Concomitant]
     Indication: MUSCLE RELAXANT THERAPY
     Route: 065
  6. HYDROCODONE [Concomitant]
     Indication: PAIN
     Route: 065
  7. SAVELLA [Concomitant]
     Indication: FIBROMYALGIA
     Route: 065
  8. DOXEPIN [Concomitant]
     Indication: STRESS
     Route: 065
  9. UNKNOWN MEDICATION [Concomitant]
     Indication: MUSCLE SPASMS
     Route: 065
  10. OMEPRAZOLE [Concomitant]
     Indication: GASTROOESOPHAGEAL REFLUX DISEASE
     Route: 065
  11. GLIMEPRID [Concomitant]
     Indication: DIABETES MELLITUS
     Route: 065
  12. PRAVASTATIN [Concomitant]
     Indication: BLOOD CHOLESTEROL
     Route: 065
  13. METFORMIN [Concomitant]
     Indication: DIABETES MELLITUS
     Route: 065
  14. MOBIC [Concomitant]
     Indication: PRODUCT USED FOR UNKNOWN INDICATION
     Route: 065
  15. TRICOR [Concomitant]
     Indication: BLOOD CHOLESTEROL
     Route: 065

REACTIONS (3)
  - Gastrointestinal perforation [Recovered/Resolved]
  - Drug dose omission [Not Recovered/Not Resolved]
  - Incorrect dose administered [Unknown]
